FAERS Safety Report 6054472-X (Version None)
Quarter: 2009Q1

REPORT INFORMATION
  Report Type: 
  Country: None (occurrence: None)
  Receive Date: 20090123
  Receipt Date: 20090123
  Transmission Date: 20090719
  Serious: Yes (Hospitalization)
  Sender: FDA-Public Use
  Company Number: None

PATIENT

DRUGS (2)
  1. MIRTAZAPINE [Suspect]
     Indication: MAJOR DEPRESSION
     Dosage: 15 MG NIGHTLY PO
     Route: 048
     Dates: start: 20081215, end: 20090115
  2. RISPERIDONE [Suspect]
     Dosage: 0.5 MG BID PO
     Route: 048
     Dates: start: 20081215, end: 20090115

REACTIONS (4)
  - ABNORMAL BEHAVIOUR [None]
  - AGGRESSION [None]
  - MOOD ALTERED [None]
  - PRODUCT QUALITY ISSUE [None]
